FAERS Safety Report 8761317 (Version 1)
Quarter: 2012Q4

REPORT INFORMATION
  Report Type: 
  Country: US (occurrence: US)
  Receive Date: 20120830
  Receipt Date: 20120830
  Transmission Date: 20130627
  Serious: Yes (Death)
  Sender: FDA-Public Use
  Company Number: US-MUTUAL PHARMACEUTICAL COMPANY, INC.-CLCY20110153

PATIENT
  Age: 80 None
  Sex: Female

DRUGS (3)
  1. COLCRYS [Suspect]
     Indication: GOUT
     Route: 065
     Dates: start: 201110, end: 201110
  2. COLCRYS [Suspect]
     Route: 065
     Dates: start: 20111024, end: 201110
  3. UNSPECIFIED MEDICATIONS [Concomitant]
     Indication: PRODUCT USED FOR UNKNOWN INDICATION
     Route: 065

REACTIONS (5)
  - Death [None]
  - Weight decreased [Not Recovered/Not Resolved]
  - Hypotension [Unknown]
  - Hepatic enzyme increased [Unknown]
  - Diarrhoea [Unknown]
